FAERS Safety Report 8259905-6 (Version None)
Quarter: 2012Q2

REPORT INFORMATION
  Report Type: 
  Country: None (occurrence: None)
  Receive Date: 20120404
  Receipt Date: 20120403
  Transmission Date: 20120825
  Serious: Yes (Other)
  Sender: FDA-Public Use
  Company Number: US-TEVA-331671USA

PATIENT
  Sex: Female
  Weight: 56.296 kg

DRUGS (1)
  1. PLAN B ONE-STEP [Suspect]
     Indication: POST COITAL CONTRACEPTION
     Dosage: 1.5 MILLIGRAM;
     Route: 048

REACTIONS (4)
  - VAGINAL DISCHARGE [None]
  - CHEST PAIN [None]
  - MYOCARDIAL INFARCTION [None]
  - MENSTRUATION IRREGULAR [None]
